FAERS Safety Report 5221032-X (Version None)
Quarter: 2007Q1

REPORT INFORMATION
  Report Type: 
  Country: None (occurrence: None)
  Receive Date: 20070126
  Receipt Date: 20070119
  Transmission Date: 20070707
  Serious: Yes (Hospitalization, Disabling)
  Sender: FDA-Public Use
  Company Number: NO-MERCK-0701NOR00006

PATIENT
  Age: 80 Year
  Sex: Female

DRUGS (8)
  1. ZOCOR [Suspect]
     Route: 048
  2. MORFIN [Concomitant]
     Route: 048
  3. VOLTAREN [Suspect]
     Route: 048
  4. LEVAXIN [Suspect]
     Route: 048
  5. NEURONTIN [Concomitant]
     Route: 048
  6. MAREVAN [Suspect]
     Indication: ATRIAL FIBRILLATION
     Route: 048
     Dates: end: 20061130
  7. PARACET [Suspect]
     Route: 048
  8. TEGRETOL [Suspect]
     Route: 048

REACTIONS (6)
  - BLOOD POTASSIUM DECREASED [None]
  - BLOOD PRESSURE INCREASED [None]
  - DRUG INTERACTION [None]
  - INTERNATIONAL NORMALISED RATIO INCREASED [None]
  - PARAPLEGIA [None]
  - SPINAL EPIDURAL HAEMORRHAGE [None]
